APPROVED DRUG PRODUCT: ABACAVIR SULFATE AND LAMIVUDINE
Active Ingredient: ABACAVIR SULFATE; LAMIVUDINE
Strength: EQ 600MG BASE;300MG
Dosage Form/Route: TABLET;ORAL
Application: A205412 | Product #001 | TE Code: AB
Applicant: HETERO LABS LTD UNIT V
Approved: Apr 16, 2025 | RLD: No | RS: No | Type: RX